FAERS Safety Report 7285103-9 (Version None)
Quarter: 2011Q1

REPORT INFORMATION
  Report Type: 
  Country: None (occurrence: None)
  Receive Date: 20110210
  Receipt Date: 20110128
  Transmission Date: 20110831
  Serious: Yes (Other)
  Sender: FDA-Public Use
  Company Number: PHHY2011PT02024

PATIENT
  Age: 3 Year
  Sex: Male

DRUGS (4)
  1. CICLOSPORIN [Suspect]
     Indication: ERYTHRODERMIC PSORIASIS
     Dosage: 4 MG/KG, UNK
     Route: 048
  2. CEFOTAXIME SODIUM [Concomitant]
     Dosage: UNK
  3. TACALCITOL [Concomitant]
     Dosage: UNK
     Route: 061
  4. CORTICOSTEROIDS [Concomitant]
     Dosage: UNK
     Route: 061

REACTIONS (10)
  - PSORIASIS [None]
  - IMPETIGO [None]
  - DERMATITIS EXFOLIATIVE [None]
  - IRRITABILITY [None]
  - URTICARIA [None]
  - ANGIOEDEMA [None]
  - LEUKOCYTOSIS [None]
  - PYREXIA [None]
  - SKIN LESION [None]
  - C-REACTIVE PROTEIN INCREASED [None]
